FAERS Safety Report 18316366 (Version 1)
Quarter: 2020Q3

REPORT INFORMATION
  Report Type: Spontaneous
  Country: US (occurrence: US)
  Receive Date: 20200927
  Receipt Date: 20200927
  Transmission Date: 20201103
  Serious: Yes (Hospitalization, Disabling, Other)
  Sender: FDA-Public Use
  Company Number: US-BEXIMCO-2020BEX00086

PATIENT
  Age: 81 Year
  Sex: Female
  Weight: 60.77 kg

DRUGS (15)
  1. VITAMIN D3 [Concomitant]
     Active Substance: CHOLECALCIFEROL
     Dosage: 1000 IU, 1X/DAY
     Dates: start: 2019
  2. METFORMIN HYDROCHLORIDE. [Suspect]
     Active Substance: METFORMIN HYDROCHLORIDE
     Indication: GLUCOSE TOLERANCE IMPAIRED
  3. METFORMIN HYDROCHLORIDE. [Suspect]
     Active Substance: METFORMIN HYDROCHLORIDE
     Indication: TYPE 2 DIABETES MELLITUS
     Dosage: 500 MG, 1X/DAY, IN THE EVENING WITH HER DINNER
     Route: 048
     Dates: end: 202008
  4. OSTEO BI?FLEX TRIPLE STRENGTH [Concomitant]
  5. ATORVASTATIN [Concomitant]
     Active Substance: ATORVASTATIN
     Dosage: 10 MG, 1X/DAY AT BEDTIME
  6. WARFARIN SODIUM. [Concomitant]
     Active Substance: WARFARIN SODIUM
     Dosage: 2.5 MG, 1X/DAY TUESDAY AND SATURDAY
  7. HYDROXYZINE HYDROCHLORIDE. [Concomitant]
     Active Substance: HYDROXYZINE HYDROCHLORIDE
     Dosage: 20 MG, 1X/DAY AT BEDTIME
  8. PREMARIN [Suspect]
     Active Substance: ESTROGENS, CONJUGATED
  9. RAMIPRIL. [Suspect]
     Active Substance: RAMIPRIL
     Dosage: 2.5 MG, 1X/DAY
  10. CENTRUM SILVER FOR WOMEN OVER 50 [Concomitant]
     Dosage: AT LUNCH
  11. LEVOTHYROXINE. [Concomitant]
     Active Substance: LEVOTHYROXINE
     Dosage: 25 ?G, 1X/DAY, EVERY MORNING BEFORE BREAKFAST
     Route: 048
  12. WARFARIN SODIUM. [Concomitant]
     Active Substance: WARFARIN SODIUM
     Dosage: 5 MG, 1X/DAY SUNDAY, MONDAY, WEDNESDAY, THURSDAY, AND FRIDAY
  13. NICOTINE. [Suspect]
     Active Substance: NICOTINE
  14. RAMIPRIL. [Suspect]
     Active Substance: RAMIPRIL
     Indication: BLOOD PRESSURE INCREASED
     Dosage: 10 MG, 1X/DAY
     Route: 048
     Dates: start: 20200703
  15. FISH OIL [Concomitant]
     Active Substance: FISH OIL
     Dosage: 1000 MG

REACTIONS (13)
  - Transient ischaemic attack [Recovered/Resolved]
  - Stress [Unknown]
  - Fall [Recovered/Resolved]
  - Dry eye [Not Recovered/Not Resolved]
  - Bone density decreased [Unknown]
  - Fatigue [Not Recovered/Not Resolved]
  - Recalled product administered [Recovered/Resolved]
  - Intentional dose omission [Recovered/Resolved]
  - Visual field defect [Recovered/Resolved]
  - Atrial fibrillation [Recovering/Resolving]
  - Head injury [Recovered/Resolved]
  - Femur fracture [Recovering/Resolving]
  - Blood pressure increased [Unknown]

NARRATIVE: CASE EVENT DATE: 2005
